FAERS Safety Report 21064301 (Version 1)
Quarter: 2022Q3

REPORT INFORMATION
  Report Type: Spontaneous
  Country: US (occurrence: None)
  Receive Date: 20220709
  Receipt Date: 20220709
  Transmission Date: 20221027
  Serious: Yes (Life-Threatening, Hospitalization, Disabling)
  Sender: FDA-Public Use
  Company Number: None

PATIENT
  Age: 35 Year
  Sex: Female
  Weight: 63 kg

DRUGS (8)
  1. SINGULAIR [Suspect]
     Active Substance: MONTELUKAST SODIUM
     Indication: Asthma
     Dosage: OTHER QUANTITY : 1 TABLET(S);?FREQUENCY : AT BEDTIME;?
     Route: 048
     Dates: start: 20140601, end: 20211105
  2. SINGULAIR [Suspect]
     Active Substance: MONTELUKAST SODIUM
  3. ADVAIR HFA [Concomitant]
     Active Substance: FLUTICASONE PROPIONATE\SALMETEROL XINAFOATE
  4. HYDROXYZINE [Concomitant]
     Active Substance: HYDROXYZINE HYDROCHLORIDE
  5. VITAMINS [Concomitant]
     Active Substance: VITAMINS
  6. FISH OIL [Concomitant]
     Active Substance: FISH OIL
  7. MAGNESIUM [Concomitant]
     Active Substance: MAGNESIUM
  8. VITAMIN B COMPLEX [Concomitant]
     Active Substance: CYANOCOBALAMIN\DEXPANTHENOL\NIACINAMIDE\PYRIDOXINE HYDROCHLORIDE\RIBOFLAVIN 5^-PHOSPHATE SODIUM\THIA

REACTIONS (10)
  - Withdrawal syndrome [None]
  - Depression [None]
  - Anxiety [None]
  - Suicidal ideation [None]
  - Eating disorder [None]
  - Weight decreased [None]
  - Insomnia [None]
  - Tremor [None]
  - Hallucination [None]
  - Nightmare [None]

NARRATIVE: CASE EVENT DATE: 20211117
